FAERS Safety Report 6112883-8 (Version None)
Quarter: 2009Q1

REPORT INFORMATION
  Report Type: 
  Country: None (occurrence: None)
  Receive Date: 20090310
  Receipt Date: 20090225
  Transmission Date: 20090719
  Serious: Yes (Hospitalization)
  Sender: FDA-Public Use
  Company Number: WAES 0901BEL00008

PATIENT
  Age: 76 Year
  Sex: Male

DRUGS (8)
  1. PRINIVIL [Suspect]
     Indication: HYPERTENSION
     Dosage: PO
     Route: 048
     Dates: start: 20030101
  2. BUPRENORPHINE HCL [Suspect]
     Indication: PAIN IN EXTREMITY
     Dosage: PO
     Route: 048
     Dates: start: 20080915, end: 20081001
  3. BISOPROLOL FUMARATE [Suspect]
     Indication: HYPERTENSION
     Dates: start: 20030101
  4. ZOCOR [Suspect]
     Indication: HYPERCHOLESTEROLAEMIA
     Dosage: PO
     Route: 048
  5. BLINDED THERAPY [Suspect]
     Indication: DRUG USE FOR UNKNOWN INDICATION
     Dosage: PO
     Route: 048
     Dates: start: 20081015, end: 20090216
  6. BLINDED THERAPY [Suspect]
     Indication: DRUG USE FOR UNKNOWN INDICATION
     Dosage: PO
     Route: 048
     Dates: start: 20090220
  7. METFORMIN HCL [Concomitant]
  8. ZOLPIDEM [Suspect]

REACTIONS (1)
  - AORTIC ANEURYSM [None]
